FAERS Safety Report 6877763-9 (Version None)
Quarter: 2010Q3

REPORT INFORMATION
  Report Type: 
  Country: None (occurrence: None)
  Receive Date: 20100727
  Receipt Date: 20090127
  Transmission Date: 20110219
  Serious: No
  Sender: FDA-Public Use
  Company Number: US-ABBOTT-08P-163-0492502-00

PATIENT
  Sex: Female
  Weight: 59.928 kg

DRUGS (6)
  1. SYNTHROID [Suspect]
     Indication: THYROIDECTOMY
     Dates: start: 19910101
  2. SYNTHROID [Suspect]
     Indication: THYROID DISORDER
     Dates: start: 20081209
  3. CLARITIN [Suspect]
     Indication: NASOPHARYNGITIS
     Dates: start: 20081117, end: 20081124
  4. ZOLOFT [Concomitant]
     Indication: NERVOUSNESS
  5. ADVIL LIQUI-GELS [Concomitant]
     Indication: SPINAL DISORDER
  6. ADVIL LIQUI-GELS [Concomitant]
     Indication: PAIN

REACTIONS (2)
  - BLOOD CHOLESTEROL INCREASED [None]
  - HYPOTHYROIDISM [None]
